FAERS Safety Report 19668460 (Version 4)
Quarter: 2021Q4

REPORT INFORMATION
  Report Type: Spontaneous
  Country: US (occurrence: US)
  Receive Date: 20210806
  Receipt Date: 20211014
  Transmission Date: 20220303
  Serious: No
  Sender: FDA-Public Use
  Company Number: US-JNJFOC-20210802988

PATIENT
  Age: 36 Year
  Sex: Female
  Weight: 86.26 kg

DRUGS (1)
  1. SIMPONI [Suspect]
     Active Substance: GOLIMUMAB
     Indication: Ankylosing spondylitis
     Route: 058
     Dates: start: 20210802

REACTIONS (4)
  - Product dose omission issue [Unknown]
  - Drug delivery system malfunction [Unknown]
  - Accidental exposure to product [Unknown]
  - Pain [Unknown]
